FAERS Safety Report 7133626-5 (Version None)
Quarter: 2010Q4

REPORT INFORMATION
  Report Type: 
  Country: None (occurrence: None)
  Receive Date: 20101202
  Receipt Date: 20101124
  Transmission Date: 20110411
  Serious: Yes (Other)
  Sender: FDA-Public Use
  Company Number: US-AMGEN-QUU274315

PATIENT

DRUGS (9)
  1. ENBREL [Suspect]
     Indication: RHEUMATOID ARTHRITIS
     Dosage: 50 MG, QWK
     Route: 058
     Dates: start: 20070201
  2. ENBREL [Suspect]
     Dosage: 50 MG, QWK
     Route: 058
     Dates: start: 20070201
  3. OMEPRAZOLE [Concomitant]
  4. TRAMADOL HCL [Concomitant]
  5. DORZOLAMIDE HYDROCHLORIDE AND TIMOLOL MALEATE [Concomitant]
     Dosage: UNK UNK, UNK
     Route: 047
  6. BRIMONIDINE TARTRATE [Concomitant]
     Dosage: UNK UNK, UNK
     Route: 047
  7. LOTEPREDNOL ETABONATE [Concomitant]
  8. TRAZODONE [Concomitant]
     Dosage: UNK UNK, UNK
     Dates: start: 20080301
  9. QUININE [Concomitant]
     Dosage: UNK UNK, UNK
     Dates: start: 20080301

REACTIONS (16)
  - ANTINUCLEAR ANTIBODY INCREASED [None]
  - AUTOIMMUNE DISORDER [None]
  - BLINDNESS UNILATERAL [None]
  - CATARACT [None]
  - CONDITION AGGRAVATED [None]
  - CORNEAL ABRASION [None]
  - DIARRHOEA [None]
  - FATIGUE [None]
  - GLAUCOMA [None]
  - HYPERSOMNIA [None]
  - INJECTION SITE PAIN [None]
  - JOINT EFFUSION [None]
  - MYALGIA [None]
  - RHEUMATOID ARTHRITIS [None]
  - ULCERATIVE KERATITIS [None]
  - VISUAL ACUITY REDUCED [None]
